FAERS Safety Report 15034572 (Version 1)
Quarter: 2018Q2

REPORT INFORMATION
  Report Type: Report from Study
  Country: None (occurrence: SE)
  Receive Date: 20180620
  Receipt Date: 20180620
  Transmission Date: 20180711
  Serious: Yes (Hospitalization)
  Sender: FDA-Public Use
  Company Number: SE-ABBVIE-18K-150-2388325-00

PATIENT
  Age: 68 Year
  Sex: Male

DRUGS (3)
  1. DUODOPA [Suspect]
     Active Substance: CARBIDOPA\LEVODOPA
     Route: 050
     Dates: start: 20180611
  2. DUODOPA [Suspect]
     Active Substance: CARBIDOPA\LEVODOPA
     Indication: PARKINSON^S DISEASE
     Route: 050
     Dates: start: 20180604
  3. DUODOPA [Suspect]
     Active Substance: CARBIDOPA\LEVODOPA
     Dosage: CURRENT DOSES;??MD: 11 ML??CD:  4.6 ML/H   ??XD: 2.0 ML
     Route: 050
     Dates: start: 201806

REACTIONS (5)
  - Flatulence [Unknown]
  - Abdominal rigidity [Unknown]
  - C-reactive protein increased [Unknown]
  - Peritonitis [Unknown]
  - Constipation [Unknown]

NARRATIVE: CASE EVENT DATE: 201806
